FAERS Safety Report 14064488 (Version 1)
Quarter: 2017Q4

REPORT INFORMATION
  Report Type: Spontaneous
  Country: MX (occurrence: MX)
  Receive Date: 20171009
  Receipt Date: 20171009
  Transmission Date: 20180321
  Serious: Yes (Other)
  Sender: FDA-Public Use
  Company Number: MX-SA-2017SA182918

PATIENT
  Sex: Female
  Weight: 66 kg

DRUGS (2)
  1. ARAVA [Suspect]
     Active Substance: LEFLUNOMIDE
     Indication: RHEUMATOID ARTHRITIS
     Route: 048
     Dates: start: 2007
  2. ENALAPRIL [Concomitant]
     Active Substance: ENALAPRIL
     Indication: HYPERTENSION
     Route: 048
     Dates: start: 2012

REACTIONS (2)
  - Hypertension [Not Recovered/Not Resolved]
  - Anterograde amnesia [Not Recovered/Not Resolved]

NARRATIVE: CASE EVENT DATE: 2012
